FAERS Safety Report 19405143 (Version 1)
Quarter: 2021Q2

REPORT INFORMATION
  Report Type: Spontaneous
  Country: US (occurrence: US)
  Receive Date: 20210611
  Receipt Date: 20210611
  Transmission Date: 20210717
  Serious: No
  Sender: FDA-Public Use
  Company Number: None

PATIENT
  Age: 82 Year
  Sex: Female
  Weight: 75.3 kg

DRUGS (10)
  1. IRON [Concomitant]
     Active Substance: IRON
  2. LOSARTAN POTASSIUM. [Concomitant]
     Active Substance: LOSARTAN POTASSIUM
  3. GABAPENTIN. [Concomitant]
     Active Substance: GABAPENTIN
  4. LEVOTHYROXINE SODIUM. [Concomitant]
     Active Substance: LEVOTHYROXINE SODIUM
  5. CALTRATE 600+D [Concomitant]
  6. ASPIRIN EC [Concomitant]
     Active Substance: ASPIRIN
  7. VERZENIO [Suspect]
     Active Substance: ABEMACICLIB
     Indication: BREAST CANCER FEMALE
     Route: 048
     Dates: start: 20210517, end: 20210611
  8. AMIODARONE HCL [Concomitant]
     Active Substance: AMIODARONE HYDROCHLORIDE
  9. MULTIVITAMIN ADULT [Concomitant]
  10. XANAX [Concomitant]
     Active Substance: ALPRAZOLAM

REACTIONS (5)
  - Diarrhoea [None]
  - Decreased appetite [None]
  - Cough [None]
  - Ageusia [None]
  - Nausea [None]
